FAERS Safety Report 8170633-8 (Version None)
Quarter: 2012Q1

REPORT INFORMATION
  Report Type: 
  Country: None (occurrence: None)
  Receive Date: 20120228
  Receipt Date: 20120217
  Transmission Date: 20120608
  Serious: Yes (Death, Life-Threatening, Other)
  Sender: FDA-Public Use
  Company Number: FR-BAXTER-2012BH004966

PATIENT
  Age: 61 Year
  Sex: Female

DRUGS (9)
  1. PREGABALIN [Concomitant]
     Indication: ANALGESIC THERAPY
     Route: 065
     Dates: start: 20111201, end: 20111210
  2. SOLU-MEDROL [Suspect]
     Indication: PRODUCT USED FOR UNKNOWN INDICATION
     Route: 042
     Dates: start: 20111205, end: 20111206
  3. ZOFRAN [Suspect]
     Indication: PRODUCT USED FOR UNKNOWN INDICATION
     Route: 042
     Dates: start: 20111205, end: 20111206
  4. IFOSFAMIDE [Suspect]
     Indication: UTERINE CANCER
     Route: 042
     Dates: start: 20111205, end: 20111206
  5. UROMITEXAN BAXTER [Suspect]
     Indication: PRODUCT USED FOR UNKNOWN INDICATION
     Route: 042
     Dates: start: 20111205, end: 20111206
  6. DURAGESIC-100 [Concomitant]
     Indication: ANALGESIC THERAPY
     Route: 065
  7. EMEND [Suspect]
     Indication: PRODUCT USED FOR UNKNOWN INDICATION
     Route: 048
     Dates: start: 20111205, end: 20111206
  8. PREGABALIN [Concomitant]
     Route: 065
     Dates: start: 20111210
  9. OXYCODONE HCL [Concomitant]
     Indication: ANALGESIC THERAPY
     Route: 065

REACTIONS (3)
  - ENCEPHALOPATHY [None]
  - RENAL FAILURE [None]
  - SEPTIC SHOCK [None]
